FAERS Safety Report 8565038-1 (Version None)
Quarter: 2012Q3

REPORT INFORMATION
  Report Type: 
  Country: None (occurrence: None)
  Receive Date: 20120803
  Receipt Date: 20120801
  Transmission Date: 20120928
  Serious: No
  Sender: FDA-Public Use
  Company Number: US-PFIZER INC-2012183102

PATIENT
  Sex: Female
  Weight: 97.506 kg

DRUGS (9)
  1. DEPAKOTE [Suspect]
     Dosage: UNK
     Route: 048
  2. PRECOSE [Concomitant]
     Indication: HYPERGLYCAEMIA
     Dosage: 100 MG, 3X/DAY
     Route: 048
  3. GENOTROPIN [Concomitant]
     Indication: HYPOTHALAMO-PITUITARY DISORDER
     Dosage: UNK, DAILY
  4. GEODON [Suspect]
     Indication: BIPOLAR DISORDER
     Dosage: 20 MG, 2X/DAY
     Route: 048
     Dates: start: 20120601, end: 20120701
  5. METFORMIN [Concomitant]
     Indication: HYPERGLYCAEMIA
     Dosage: 1000 MG, 2X/DAY
  6. GEODON [Suspect]
     Indication: AFFECTIVE DISORDER
  7. POTASSIUM [Concomitant]
     Indication: BLOOD POTASSIUM DECREASED
     Dosage: 3 MG, 4X/DAY
  8. ZIPRASIDONE HYDROCHLORIDE [Suspect]
     Indication: BIPOLAR DISORDER
     Dosage: 20 MG, 2X/DAY
     Dates: start: 20120701, end: 20120713
  9. ZIPRASIDONE HYDROCHLORIDE [Suspect]
     Indication: AFFECTIVE DISORDER

REACTIONS (3)
  - ABDOMINAL DISTENSION [None]
  - HEADACHE [None]
  - INCREASED APPETITE [None]
